FAERS Safety Report 14692828 (Version 1)
Quarter: 2018Q1

REPORT INFORMATION
  Report Type: Spontaneous
  Country: GB (occurrence: GB)
  Receive Date: 20180329
  Receipt Date: 20180329
  Transmission Date: 20180509
  Serious: Yes (Other)
  Sender: FDA-Public Use
  Company Number: GB-MYLANLABS-2018M1017911

PATIENT
  Age: 25 Year
  Sex: Male

DRUGS (12)
  1. IFOSFAMIDE. [Interacting]
     Active Substance: IFOSFAMIDE
     Indication: RETROPERITONEAL CANCER
     Dosage: SECOND COURSE
     Route: 065
  2. IFOSFAMIDE. [Suspect]
     Active Substance: IFOSFAMIDE
     Indication: RETROPERITONEAL CANCER
     Dosage: DISSOLVED IN 9 LITERS OF NORMAL SALINE
     Route: 041
  3. VINCRISTINE [Concomitant]
     Active Substance: VINCRISTINE
     Indication: RETROPERITONEAL CANCER
     Dosage: SECOND COURSE
     Route: 065
  4. MESNA. [Interacting]
     Active Substance: MESNA
     Indication: PRODUCT USED FOR UNKNOWN INDICATION
     Dosage: DISSOLVED IN 9 LITERS OF NORMAL SALINE
     Route: 041
  5. VINCRISTINE [Concomitant]
     Active Substance: VINCRISTINE
     Dosage: 2 MG, UNK
     Route: 040
  6. DOXORUBICIN [Concomitant]
     Active Substance: DOXORUBICIN
     Indication: RETROPERITONEAL CANCER
     Route: 040
  7. CHLORPROMAZINE. [Concomitant]
     Active Substance: CHLORPROMAZINE
     Indication: ANTIEMETIC SUPPORTIVE CARE
     Dosage: 25 MG, UNK
     Route: 048
  8. METOCLOPRAMIDE. [Concomitant]
     Active Substance: METOCLOPRAMIDE
     Indication: ANTIEMETIC SUPPORTIVE CARE
     Route: 048
  9. DIAMORPHINE [Concomitant]
     Active Substance: DIAMORPHINE
     Indication: ANTIEMETIC SUPPORTIVE CARE
     Dosage: A DOSE OF 5-10 MG
     Route: 048
  10. WARFARIN [Interacting]
     Active Substance: WARFARIN
     Indication: PROPHYLAXIS
     Route: 065
  11. DOXORUBICIN [Concomitant]
     Active Substance: DOXORUBICIN
     Dosage: SECOND COURSE
     Route: 065
  12. NORMAL SALINE [Concomitant]
     Active Substance: SODIUM CHLORIDE
     Indication: MEDICATION DILUTION
     Dosage: 1 L, UNK
     Route: 041

REACTIONS (2)
  - Drug interaction [Unknown]
  - International normalised ratio increased [Unknown]
